FAERS Safety Report 5562060-4 (Version None)
Quarter: 2007Q4

REPORT INFORMATION
  Report Type: 
  Country: None (occurrence: None)
  Receive Date: 20071215
  Receipt Date: 20071001
  Transmission Date: 20080405
  Serious: No
  Sender: FDA-Public Use
  Company Number: US-AMGEN-KDL244631

PATIENT
  Sex: Female
  Weight: 72.6 kg

DRUGS (1)
  1. ENBREL [Suspect]
     Indication: ANKYLOSING SPONDYLITIS
     Route: 058
     Dates: start: 20070913, end: 20070921

REACTIONS (4)
  - CHILLS [None]
  - HEADACHE [None]
  - MALAISE [None]
  - PALPITATIONS [None]
